FAERS Safety Report 6226504-7 (Version None)
Quarter: 2009Q2

REPORT INFORMATION
  Report Type: 
  Country: None (occurrence: None)
  Receive Date: 20090612
  Receipt Date: 20090518
  Transmission Date: 20091009
  Serious: No
  Sender: FDA-Public Use
  Company Number: US-ABBOTT-09P-163-0574290-00

PATIENT
  Sex: Female
  Weight: 60.382 kg

DRUGS (2)
  1. HUMIRA [Suspect]
     Indication: PSORIATIC ARTHROPATHY
     Route: 058
     Dates: start: 20080107
  2. HUMIRA [Suspect]
     Indication: PSORIASIS
     Dates: start: 20080201

REACTIONS (3)
  - DRUG INEFFECTIVE [None]
  - SINUSITIS [None]
  - STRESS [None]
